FAERS Safety Report 4526643-2 (Version None)
Quarter: 2004Q4

REPORT INFORMATION
  Report Type: 
  Country: None (occurrence: None)
  Receive Date: 20041214
  Receipt Date: 20041208
  Transmission Date: 20050328
  Serious: Yes (Hospitalization)
  Sender: FDA-Public Use
  Company Number: US-GLAXOSMITHKLINE-A0536635A

PATIENT
  Age: 52 Year
  Sex: Female

DRUGS (6)
  1. LOTRONEX [Suspect]
     Indication: IRRITABLE BOWEL SYNDROME
     Dosage: .5MG PER DAY
     Route: 048
     Dates: start: 20041202, end: 20041204
  2. M.V.I. [Concomitant]
  3. ASPIRIN [Concomitant]
  4. NORVASC [Concomitant]
  5. VIVELLE [Concomitant]
  6. Q10 [Concomitant]

REACTIONS (1)
  - COLITIS ISCHAEMIC [None]
